FAERS Safety Report 15068301 (Version 1)
Quarter: 2018Q2

REPORT INFORMATION
  Report Type: Spontaneous
  Country: US (occurrence: US)
  Receive Date: 20180626
  Receipt Date: 20180626
  Transmission Date: 20180711
  Serious: Yes (Other)
  Sender: FDA-Public Use
  Company Number: US-UNITED THERAPEUTICS-UNT-2018-009166

PATIENT
  Sex: Male

DRUGS (10)
  1. CYCLOPHOSPHAMIDE. [Concomitant]
     Active Substance: CYCLOPHOSPHAMIDE
     Indication: NEUROBLASTOMA
     Route: 065
  2. CYCLOPHOSPHAMIDE W/DOXORUBICIN/VINCRISTINE [Concomitant]
     Active Substance: CYCLOPHOSPHAMIDE\DOXORUBICIN\VINCRISTINE
     Indication: NEUROBLASTOMA
     Route: 065
  3. INTERLEUKIN-2 [Suspect]
     Active Substance: ALDESLEUKIN
     Indication: NEUROBLASTOMA
     Dosage: 1 MILLION UNITS/M2/DOSE, QOD FOR 6 DOSES
     Route: 058
  4. CYCLOPHOSPHAMIDE W/DOXORUBICIN/VINCRISTINE [Concomitant]
     Active Substance: CYCLOPHOSPHAMIDE\DOXORUBICIN\VINCRISTINE
     Indication: NEUROBLASTOMA
     Route: 065
  5. GM-CSF [Suspect]
     Active Substance: GRANULOCYTE-MACROPHAGE COLONY-STIMULATING FACTOR
     Indication: NEUROBLASTOMA
     Dosage: 250 MG/M2/DAY
     Route: 058
  6. MELPHALAN. [Concomitant]
     Active Substance: MELPHALAN
     Indication: NEUROBLASTOMA
     Route: 065
  7. TOPOTECAN [Concomitant]
     Active Substance: TOPOTECAN HYDROCHLORIDE
     Indication: NEUROBLASTOMA
     Route: 065
  8. DINUTUXIMAB [Suspect]
     Active Substance: DINUTUXIMAB
     Indication: NEUROBLASTOMA
     Dosage: 17.5 MG/M2/DOSE
     Route: 041
  9. CISPLATIN W/ETOPOSIDE [Concomitant]
     Active Substance: CISPLATIN\ETOPOSIDE
     Indication: NEUROBLASTOMA
     Route: 065
  10. BUSULFAN. [Concomitant]
     Active Substance: BUSULFAN
     Indication: NEUROBLASTOMA
     Route: 065

REACTIONS (4)
  - Pain [Unknown]
  - Febrile neutropenia [Unknown]
  - Bone marrow failure [Unknown]
  - Decreased appetite [Unknown]
